FAERS Safety Report 10035382 (Version 2)
Quarter: 2014Q1

REPORT INFORMATION
  Report Type: Report from Study
  Country: US (occurrence: US)
  Receive Date: 20140325
  Receipt Date: 20140325
  Transmission Date: 20141002
  Serious: Yes (Death)
  Sender: FDA-Public Use
  Company Number: US-ACTELION-A-US2014-94636

PATIENT
  Age: 46 Year
  Sex: Male

DRUGS (5)
  1. VELETRI [Suspect]
     Indication: PULMONARY ARTERIAL HYPERTENSION
     Dosage: 1.5 MG
     Route: 042
     Dates: start: 20140122, end: 20140312
  2. TRACLEER [Suspect]
     Indication: PULMONARY ARTERIAL HYPERTENSION
     Dosage: UNK
     Route: 048
  3. SILDENAFIL [Concomitant]
  4. COUMADIN [Concomitant]
  5. TYVASO [Concomitant]

REACTIONS (4)
  - Renal failure [Fatal]
  - Retching [Unknown]
  - Nausea [Unknown]
  - Swelling [Unknown]
